FAERS Safety Report 24379017 (Version 3)
Quarter: 2024Q4

REPORT INFORMATION
  Report Type: Spontaneous
  Country: DE (occurrence: DE)
  Receive Date: 20240930
  Receipt Date: 20241029
  Transmission Date: 20250115
  Serious: Yes (Other)
  Sender: BRISTOL-MYERS SQUIBB COMPANY
  Company Number: DE-BRISTOL-MYERS SQUIBB COMPANY-2024-153266

PATIENT
  Age: 77 Year
  Sex: Male
  Weight: 55 kg

DRUGS (3)
  1. ELIQUIS [Suspect]
     Active Substance: APIXABAN
     Indication: Atrial fibrillation
  2. ELIQUIS [Suspect]
     Active Substance: APIXABAN
     Indication: Ischaemic stroke
     Dosage: 2.5 MG IN THE MORNING, 2.5 MG AT NOON AT ?12:00, 5 MG IN THE EVENING, 14-DAY CYCLE.
  3. ELIQUIS [Suspect]
     Active Substance: APIXABAN

REACTIONS (15)
  - Memory impairment [Unknown]
  - Dysarthria [Unknown]
  - Renal cyst [Unknown]
  - Kidney infection [Unknown]
  - Bladder pain [Unknown]
  - Prostatic pain [Unknown]
  - Testicular pain [Unknown]
  - Genital erythema [Unknown]
  - Off label use [Unknown]
  - Hypertension [Unknown]
  - Back pain [Unknown]
  - Brain fog [Unknown]
  - General physical health deterioration [Unknown]
  - Transient ischaemic attack [Unknown]
  - Treatment noncompliance [Unknown]
